FAERS Safety Report 8616726-X (Version None)
Quarter: 2012Q3

REPORT INFORMATION
  Report Type: 
  Country: None (occurrence: None)
  Receive Date: 20120823
  Receipt Date: 20120817
  Transmission Date: 20120928
  Serious: Yes (Hospitalization, Other)
  Sender: FDA-Public Use
  Company Number: PHHY2012GB039884

PATIENT
  Age: 63 Year
  Sex: Male

DRUGS (3)
  1. ITRACONAZOLE [Interacting]
     Indication: BRONCHOPULMONARY ASPERGILLOSIS
     Dosage: 100 MG, BID
     Route: 048
     Dates: start: 20120306, end: 20120414
  2. STEROIDS NOS [Concomitant]
  3. SIMVASTATIN [Suspect]

REACTIONS (10)
  - LIVER FUNCTION TEST ABNORMAL [None]
  - ALANINE AMINOTRANSFERASE INCREASED [None]
  - CELLULITIS [None]
  - BLOOD CREATINE PHOSPHOKINASE INCREASED [None]
  - MOBILITY DECREASED [None]
  - MYOSITIS [None]
  - ASTHENIA [None]
  - DRUG INTERACTION [None]
  - OEDEMA PERIPHERAL [None]
  - MYOPATHY [None]
